FAERS Safety Report 4279365-X (Version None)
Quarter: 2004Q1

REPORT INFORMATION
  Report Type: 
  Country: None (occurrence: None)
  Receive Date: 20040123
  Receipt Date: 20040112
  Transmission Date: 20041129
  Serious: Yes (Life-Threatening, Hospitalization)
  Sender: FDA-Public Use
  Company Number: UK057321

PATIENT
  Age: 49 Year
  Sex: Male

DRUGS (8)
  1. KINERET [Suspect]
     Indication: RHEUMATOID ARTHRITIS
     Dosage: 100 MG DAILY SC
     Route: 058
     Dates: start: 20021108, end: 20030720
  2. METHOTREXATE [Suspect]
     Dates: end: 20030701
  3. METHYLPREDNISOLONE [Suspect]
     Dosage: 6 MG DAILY
  4. SULFASALAZINE [Suspect]
  5. PROGLUMETACIN MALEATE [Concomitant]
  6. LACTULOSE [Concomitant]
  7. CALCIUM GLUBIONATE [Concomitant]
  8. OMEPRAZOLE [Concomitant]

REACTIONS (8)
  - ARTHRITIS BACTERIAL [None]
  - BURSITIS [None]
  - DIALYSIS [None]
  - LUNG INFECTION PSEUDOMONAL [None]
  - MEDICAL DEVICE COMPLICATION [None]
  - PSOAS ABSCESS [None]
  - RENAL FAILURE ACUTE [None]
  - RETROPERITONEAL HAEMORRHAGE [None]
